FAERS Safety Report 13227980 (Version 3)
Quarter: 2017Q3

REPORT INFORMATION
  Report Type: Spontaneous
  Country: US (occurrence: US)
  Receive Date: 20170213
  Receipt Date: 20170915
  Transmission Date: 20171127
  Serious: No
  Sender: FDA-Public Use
  Company Number: US-VIFOR (INTERNATIONAL) INC.-VIT-2016-03654

PATIENT
  Sex: Male
  Weight: 104.42 kg

DRUGS (12)
  1. VELTASSA [Suspect]
     Active Substance: PATIROMER
     Indication: BLOOD PHOSPHORUS DECREASED
  2. SODIUM BICARBONATE. [Concomitant]
     Active Substance: SODIUM BICARBONATE
     Dosage: FOUR TIMES TWICE DAILY
  3. LEVOTHYROXINE. [Concomitant]
     Active Substance: LEVOTHYROXINE
  4. CYANOCOBALAMIN. [Concomitant]
     Active Substance: CYANOCOBALAMIN
  5. ERGOCALCIFEROL. [Concomitant]
     Active Substance: ERGOCALCIFEROL
  6. VELTASSA [Suspect]
     Active Substance: PATIROMER
     Indication: HYPERKALAEMIA
     Route: 048
     Dates: start: 20160701
  7. ULORIC [Concomitant]
     Active Substance: FEBUXOSTAT
  8. TRADJENTA [Concomitant]
     Active Substance: LINAGLIPTIN
     Indication: RENAL FAILURE
  9. ATORVASTATIN CALCIUM. [Concomitant]
     Active Substance: ATORVASTATIN CALCIUM
  10. VELTASSA [Suspect]
     Active Substance: PATIROMER
     Indication: END STAGE RENAL DISEASE
     Route: 048
     Dates: start: 201707
  11. PROBIOTIC [Concomitant]
     Active Substance: PROBIOTICS NOS
  12. MENAQUINONE/COLECALCIFEROL [Concomitant]

REACTIONS (4)
  - Constipation [Not Recovered/Not Resolved]
  - Drug dose omission [Unknown]
  - Product preparation error [Recovered/Resolved]
  - Off label use [Unknown]

NARRATIVE: CASE EVENT DATE: 2016
